FAERS Safety Report 10601623 (Version 1)
Quarter: 2014Q4

REPORT INFORMATION
  Report Type: Spontaneous
  Country: JP (occurrence: None)
  Receive Date: 20141120
  Receipt Date: 20141120
  Transmission Date: 20150529
  Serious: Yes (Hospitalization, Other)
  Sender: FDA-Public Use
  Company Number: AXC-2014-000710

PATIENT
  Age: 53 Year
  Sex: Female

DRUGS (1)
  1. URSODEOXYCHOLIC ACID [Suspect]
     Active Substance: URSODIOL
     Indication: CHOLELITHIASIS

REACTIONS (2)
  - Bile duct stone [None]
  - Cholangitis [None]
